FAERS Safety Report 5235553-7 (Version None)
Quarter: 2007Q1

REPORT INFORMATION
  Report Type: 
  Country: None (occurrence: None)
  Receive Date: 20061208
  Receipt Date: 20060309
  Transmission Date: 20070707
  Serious: Yes (Other)
  Sender: FDA-Public Use
  Company Number: 2006UW02542

PATIENT
  Age: 49 Year
  Sex: Female
  Weight: 79.8331 kg

DRUGS (8)
  1. CRESTOR [Suspect]
     Indication: BLOOD CHOLESTEROL INCREASED
     Dosage: 10 MG DAILY PO
     Route: 048
     Dates: start: 20060111, end: 20060215
  2. CELEBREX [Concomitant]
  3. DIOVAN HCT [Concomitant]
  4. TOPROL-XL [Concomitant]
  5. PREMARIN [Concomitant]
  6. VITAMIN CAP [Concomitant]
  7. FLONASE [Concomitant]
  8. FISH OIL [Concomitant]

REACTIONS (4)
  - ANXIETY [None]
  - INSOMNIA [None]
  - NIGHT SWEATS [None]
  - RASH [None]
